FAERS Safety Report 8465697-8 (Version None)
Quarter: 2012Q2

REPORT INFORMATION
  Report Type: 
  Country: None (occurrence: None)
  Receive Date: 20120620
  Receipt Date: 20120620
  Transmission Date: 20120825
  Serious: Yes (Life-Threatening)
  Sender: FDA-Public Use
  Company Number: None

PATIENT
  Age: 80 Year
  Sex: Female
  Weight: 69.8539 kg

DRUGS (1)
  1. VALACYCLOVIR 1 GM [Suspect]
     Indication: HERPES ZOSTER
     Dosage: 1 GM 2 X DAILY

REACTIONS (4)
  - ABDOMINAL PAIN UPPER [None]
  - TREMOR [None]
  - CHILLS [None]
  - DIARRHOEA [None]
